FAERS Safety Report 9709711 (Version 3)
Quarter: 2013Q4

REPORT INFORMATION
  Report Type: Spontaneous
  Country: IT (occurrence: IT)
  Receive Date: 20131126
  Receipt Date: 20131205
  Transmission Date: 20140711
  Serious: Yes (Other)
  Sender: FDA-Public Use
  Company Number: IT-JNJFOC-20131111605

PATIENT
  Age: 40 Year
  Sex: Female

DRUGS (2)
  1. SIMPONI [Suspect]
     Indication: RHEUMATOID ARTHRITIS
     Route: 058
     Dates: start: 20130701, end: 20131024
  2. METHOTREXATE [Suspect]
     Indication: ARTHRITIS
     Route: 030
     Dates: start: 20130313, end: 20130911

REACTIONS (3)
  - Urticaria [Unknown]
  - Drug-induced liver injury [Unknown]
  - Dermatitis [Unknown]
